FAERS Safety Report 5407091-X (Version None)
Quarter: 2007Q3

REPORT INFORMATION
  Report Type: 
  Country: None (occurrence: None)
  Receive Date: 20070802
  Receipt Date: 20070509
  Transmission Date: 20080115
  Serious: Yes (Other)
  Sender: FDA-Public Use
  Company Number: 530#6#2007-00034

PATIENT
  Age: 68 Year
  Sex: Male

DRUGS (5)
  1. NEUPRO-2MG/ 24H (ROTIGOTINE) [Suspect]
     Indication: PARKINSON'S DISEASE
     Dosage: 2 MG/24H (2 MG/24H 1 IN 1 DAY(S)) TRANSDERMAL
     Route: 062
     Dates: start: 20070206, end: 20070213
  2. BUDIPINE 15MG, TABLETS (BUDIPINE) [Suspect]
     Indication: PARKINSON'S DISEASE
     Dosage: 45 MG (15 MG 3 IN 1 DAY(S)) ORAL
     Route: 048
     Dates: start: 20020225, end: 20070205
  3. CARBIDOPA 100MG, TABLETS (CARBIDOPA) [Suspect]
     Indication: PARKINSON'S DISEASE
     Dosage: 100MG-50MG-50MG-50MG PER DAY ORAL
     Route: 048
     Dates: start: 20010703, end: 20070205
  4. SELEGILINE 5MG, TABLETS (SELEGILINE) [Suspect]
     Indication: PARKINSON'S DISEASE
     Dosage: 10 MG (5 MG 2 IN 1 DAY(S)) ORAL
     Route: 048
     Dates: start: 20031113, end: 20070205
  5. LORMETAZEPAM (LORMETAZEPAM) [Concomitant]

REACTIONS (1)
  - PLEURAL EFFUSION [None]
